FAERS Safety Report 9001038 (Version 1)
Quarter: 2013Q1

REPORT INFORMATION
  Report Type: Spontaneous
  Country: US (occurrence: None)
  Receive Date: 20130103
  Receipt Date: 20130103
  Transmission Date: 20140127
  Serious: Yes (Other)
  Sender: FDA-Public Use
  Company Number: None

PATIENT
  Age: 49 Year
  Sex: Male
  Weight: 146.51 kg

DRUGS (1)
  1. CLOTRIMAZOLE/ BETAMETHASONE [Suspect]
     Indication: PSORIASIS
     Dates: start: 20120623

REACTIONS (5)
  - Product substitution issue [None]
  - No therapeutic response [None]
  - Psoriasis [None]
  - Pruritus [None]
  - Haemorrhage [None]
